FAERS Safety Report 6425837-9 (Version None)
Quarter: 2009Q4

REPORT INFORMATION
  Report Type: 
  Country: None (occurrence: None)
  Receive Date: 20091103
  Receipt Date: 20090402
  Transmission Date: 20100525
  Serious: No
  Sender: FDA-Public Use
  Company Number: US-ABBOTT-09P-163-0566293-00

PATIENT
  Sex: Female
  Weight: 54.48 kg

DRUGS (3)
  1. BIAXIN [Suspect]
     Indication: PNEUMONIA
     Dosage: 375MG 1IN1DAY
     Route: 048
     Dates: start: 20090401, end: 20090401
  2. CLONAZEPAM [Concomitant]
     Indication: DRUG USE FOR UNKNOWN INDICATION
  3. PREDNISONE TAB [Concomitant]
     Indication: DRUG USE FOR UNKNOWN INDICATION

REACTIONS (6)
  - ABDOMINAL DISCOMFORT [None]
  - BODY TEMPERATURE FLUCTUATION [None]
  - CHILLS [None]
  - NAUSEA [None]
  - PAIN [None]
  - VOMITING [None]
